FAERS Safety Report 10601735 (Version 3)
Quarter: 2015Q2

REPORT INFORMATION
  Report Type: Spontaneous
  Country: US (occurrence: None)
  Receive Date: 20141120
  Receipt Date: 20150504
  Transmission Date: 20150821
  Serious: Yes (Hospitalization)
  Sender: FDA-Public Use
  Company Number: US-001449

PATIENT
  Age: 59 Year
  Sex: Male

DRUGS (2)
  1. GATTEX [Suspect]
     Active Substance: TEDUGLUTIDE\WATER
     Indication: SHORT-BOWEL SYNDROME
     Dosage: (DF SUBCUTANEOUS)
     Route: 058
     Dates: start: 20140328
  2. PERCOCET [Concomitant]
     Active Substance: ACETAMINOPHEN\OXYCODONE HYDROCHLORIDE

REACTIONS (12)
  - Suicidal ideation [None]
  - Renal failure [None]
  - Depressed level of consciousness [None]
  - Inappropriate schedule of drug administration [None]
  - Anger [None]
  - Hypoaesthesia [None]
  - Blood pressure decreased [None]
  - Aggression [None]
  - Verbal abuse [None]
  - Loss of consciousness [None]
  - Intentional overdose [None]
  - Dialysis [None]

NARRATIVE: CASE EVENT DATE: 20141107
